FAERS Safety Report 5755359-X (Version None)
Quarter: 2008Q2

REPORT INFORMATION
  Report Type: 
  Country: None (occurrence: None)
  Receive Date: 20080602
  Receipt Date: 20080526
  Transmission Date: 20081010
  Serious: Yes (Other)
  Sender: FDA-Public Use
  Company Number: PT-AVENTIS-200812437EU

PATIENT
  Sex: Female

DRUGS (3)
  1. LOVENOX [Suspect]
     Route: 058
  2. LOVENOX [Suspect]
     Route: 058
  3. LOVENOX [Suspect]
     Route: 058

REACTIONS (3)
  - ABORTION SPONTANEOUS [None]
  - DRUG EXPOSURE DURING PREGNANCY [None]
  - HAEMORRHAGE [None]
